FAERS Safety Report 24135998 (Version 1)
Quarter: 2024Q3

REPORT INFORMATION
  Report Type: Report from Study
  Country: US (occurrence: US)
  Receive Date: 20240725
  Receipt Date: 20240725
  Transmission Date: 20241017
  Serious: Yes (Other)
  Sender: UCB
  Company Number: US-UCBSA-2023054662

PATIENT
  Age: 55 Year
  Sex: Female

DRUGS (4)
  1. ROZANOLIXIZUMAB [Suspect]
     Active Substance: ROZANOLIXIZUMAB
     Indication: Myasthenia gravis
     Dosage: 560 MILLIGRAM (4ML) ONCE WEEKLY (QW)
     Route: 058
     Dates: start: 20231113
  2. ROZANOLIXIZUMAB [Suspect]
     Active Substance: ROZANOLIXIZUMAB
     Dosage: 560 MILLIGRAM (4ML) ONCE WEEKLY (QW)
     Route: 058
     Dates: start: 20240205, end: 20240311
  3. ROZANOLIXIZUMAB [Suspect]
     Active Substance: ROZANOLIXIZUMAB
     Dosage: 560 MILLIGRAM (4ML) ONCE WEEKLY (QW)
     Route: 058
     Dates: start: 20240408
  4. ROZANOLIXIZUMAB [Suspect]
     Active Substance: ROZANOLIXIZUMAB
     Dosage: 560 MILLIGRAM (4ML) ONCE WEEKLY (QW)
     Route: 058
     Dates: start: 20240610

REACTIONS (22)
  - Myasthenia gravis [Not Recovered/Not Resolved]
  - Blood pressure increased [Recovered/Resolved]
  - Anxiety [Recovered/Resolved]
  - Nervousness [Recovered/Resolved]
  - Dizziness [Recovered/Resolved]
  - Headache [Recovered/Resolved]
  - Discomfort [Recovered/Resolved]
  - Diarrhoea [Recovering/Resolving]
  - Injection site discomfort [Unknown]
  - Dysarthria [Not Recovered/Not Resolved]
  - Nasal congestion [Recovering/Resolving]
  - Infusion site swelling [Recovering/Resolving]
  - Infusion site pruritus [Recovering/Resolving]
  - Abdominal discomfort [Recovering/Resolving]
  - Nausea [Recovering/Resolving]
  - Increased upper airway secretion [Recovering/Resolving]
  - Infusion site pain [Unknown]
  - Fatigue [Not Recovered/Not Resolved]
  - Visual impairment [Not Recovered/Not Resolved]
  - Therapeutic response shortened [Unknown]
  - Drug effect less than expected [Unknown]
  - Drug ineffective [Unknown]

NARRATIVE: CASE EVENT DATE: 20231113
